FAERS Safety Report 11739268 (Version 3)
Quarter: 2016Q1

REPORT INFORMATION
  Report Type: Spontaneous
  Country: US (occurrence: US)
  Receive Date: 20151113
  Receipt Date: 20160111
  Transmission Date: 20160525
  Serious: No
  Sender: FDA-Public Use
  Company Number: US-009507513-1511USA003081

PATIENT
  Age: 60 Year
  Sex: Female
  Weight: 61.22 kg

DRUGS (4)
  1. BELSOMRA [Suspect]
     Active Substance: SUVOREXANT
     Indication: INSOMNIA
     Dosage: 15MG, QD
     Route: 048
  2. PROMETRIUM [Concomitant]
     Active Substance: PROGESTERONE
     Dosage: UNK
     Route: 048
     Dates: start: 201401
  3. PROMETHAZINE [Concomitant]
     Active Substance: PROMETHAZINE\PROMETHAZINE HYDROCHLORIDE
     Dosage: UNK
     Route: 048
     Dates: start: 20150610
  4. ESTRADIOL. [Concomitant]
     Active Substance: ESTRADIOL
     Dosage: UNK
     Route: 048
     Dates: start: 20140110

REACTIONS (2)
  - Hallucination [Recovered/Resolved]
  - Hallucination [Recovered/Resolved]

NARRATIVE: CASE EVENT DATE: 20151031
